FAERS Safety Report 12225795 (Version 1)
Quarter: 2016Q1

REPORT INFORMATION
  Report Type: Spontaneous
  Country: US (occurrence: None)
  Receive Date: 20160330
  Receipt Date: 20160330
  Transmission Date: 20160526
  Serious: Yes (Other)
  Sender: FDA-Public Use
  Company Number: None

PATIENT
  Age: 31 Year
  Sex: Female
  Weight: 58.97 kg

DRUGS (1)
  1. BOTOX [Suspect]
     Active Substance: ONABOTULINUMTOXINA
     Route: 030
     Dates: start: 20160324, end: 20160324

REACTIONS (13)
  - Musculoskeletal pain [None]
  - Presyncope [None]
  - Vision blurred [None]
  - Neck pain [None]
  - Cough [None]
  - Activities of daily living impaired [None]
  - Dysphonia [None]
  - Headache [None]
  - Tinnitus [None]
  - Depression [None]
  - Pharyngeal hypoaesthesia [None]
  - Dyspnoea [None]
  - Dysarthria [None]

NARRATIVE: CASE EVENT DATE: 20160324
